FAERS Safety Report 23422346 (Version 1)
Quarter: 2024Q1

REPORT INFORMATION
  Report Type: Spontaneous
  Country: US (occurrence: None)
  Receive Date: 20240118
  Receipt Date: 20240118
  Transmission Date: 20240410
  Serious: Yes (Other)
  Sender: FDA-Public Use
  Company Number: None

PATIENT
  Age: 58 Year
  Sex: Male
  Weight: 97.65 kg

DRUGS (3)
  1. TESTOSTERONE [Suspect]
     Active Substance: TESTOSTERONE
     Indication: Blood testosterone decreased
     Dosage: 9 DF DOSAFE FORM SUBCUTANEOUS ?
     Route: 058
     Dates: start: 20231030, end: 20240103
  2. TESTOSTERONE [Suspect]
     Active Substance: TESTOSTERONE
     Indication: Andropause
  3. TESTOSTERONE [Suspect]
     Active Substance: TESTOSTERONE
     Indication: Fatigue

REACTIONS (5)
  - Device extrusion [None]
  - Implant site infection [None]
  - Incision site complication [None]
  - Implant site discharge [None]
  - Bacterial infection [None]

NARRATIVE: CASE EVENT DATE: 20231106
